FAERS Safety Report 24571502 (Version 2)
Quarter: 2024Q4

REPORT INFORMATION
  Report Type: Spontaneous
  Country: CO (occurrence: CO)
  Receive Date: 20241101
  Receipt Date: 20241230
  Transmission Date: 20250115
  Serious: Yes (Hospitalization)
  Sender: HRA PHARMA
  Company Number: CO-ORG100014127-2024000098

PATIENT
  Age: 54 Year
  Sex: Female
  Weight: 84 kg

DRUGS (5)
  1. LYSODREN [Suspect]
     Active Substance: MITOTANE
     Indication: Adrenocortical carcinoma
     Dosage: 1 MONTH
     Dates: start: 20240307
  2. LYSODREN [Suspect]
     Active Substance: MITOTANE
     Indication: Adrenocortical carcinoma
     Dates: start: 20240320
  3. LYSODREN [Suspect]
     Active Substance: MITOTANE
     Indication: Adrenocortical carcinoma
     Dates: end: 20241218
  4. HYDROCORTISONE [Concomitant]
     Active Substance: HYDROCORTISONE
     Indication: Product used for unknown indication
     Dates: start: 202403
  5. ROSUVASTATIN [Concomitant]
     Active Substance: ROSUVASTATIN
     Indication: Product used for unknown indication
     Dates: start: 2022

REACTIONS (6)
  - Urinary tract infection [Unknown]
  - Urinary tract infection [Not Recovered/Not Resolved]
  - Blood sodium decreased [Unknown]
  - Oral herpes [Recovered/Resolved]
  - Pharyngotonsillitis [Recovered/Resolved]
  - Transaminases increased [Not Recovered/Not Resolved]

NARRATIVE: CASE EVENT DATE: 20240320
